FAERS Safety Report 6171142-8 (Version None)
Quarter: 2009Q2

REPORT INFORMATION
  Report Type: 
  Country: None (occurrence: None)
  Receive Date: 20090428
  Receipt Date: 20090428
  Transmission Date: 20091009
  Serious: Yes (Life-Threatening, Disabling)
  Sender: FDA-Public Use
  Company Number: None

PATIENT
  Age: 73 Year
  Sex: Male
  Weight: 83.9154 kg

DRUGS (1)
  1. PLAVIX [Suspect]
     Indication: STENT PLACEMENT
     Dosage: 75 MG 1 PER DAY PO
     Route: 048
     Dates: start: 20090227, end: 20090403

REACTIONS (10)
  - EYE PAIN [None]
  - FACIAL PAIN [None]
  - LIP PAIN [None]
  - MUSCLE DISORDER [None]
  - OROPHARYNGEAL PAIN [None]
  - PYREXIA [None]
  - RASH [None]
  - SPEECH DISORDER [None]
  - URINARY TRACT DISORDER [None]
  - URTICARIA [None]
